FAERS Safety Report 14275710 (Version 3)
Quarter: 2018Q4

REPORT INFORMATION
  Report Type: Spontaneous
  Country: US (occurrence: US)
  Receive Date: 20171211
  Receipt Date: 20181218
  Transmission Date: 20190204
  Serious: Yes (Hospitalization, Disabling, Other)
  Sender: FDA-Public Use
  Company Number: US-OTSUKA-2017_012906

PATIENT
  Age: 26 Year
  Sex: Female

DRUGS (15)
  1. WELLBUTRIN [Concomitant]
     Active Substance: BUPROPION HYDROCHLORIDE
     Indication: PRODUCT USED FOR UNKNOWN INDICATION
     Dosage: UNK
     Route: 065
  2. ARIPIPRAZOLE. [Concomitant]
     Active Substance: ARIPIPRAZOLE
     Indication: PRODUCT USED FOR UNKNOWN INDICATION
     Dosage: UNK
     Route: 065
     Dates: start: 20150904, end: 2016
  3. ABILIFY [Suspect]
     Active Substance: ARIPIPRAZOLE
     Dosage: 10 MG, UNK
     Route: 065
  4. AMOXICILLIN. [Concomitant]
     Active Substance: AMOXICILLIN
     Indication: PRODUCT USED FOR UNKNOWN INDICATION
     Dosage: UNK
     Route: 065
  5. TOPAMAX [Concomitant]
     Active Substance: TOPIRAMATE
     Indication: PRODUCT USED FOR UNKNOWN INDICATION
     Dosage: UNK
     Route: 065
  6. TYLENOL [Concomitant]
     Active Substance: ACETAMINOPHEN
     Indication: PRODUCT USED FOR UNKNOWN INDICATION
     Dosage: UNK
     Route: 065
  7. CELEXA [Concomitant]
     Active Substance: CITALOPRAM HYDROBROMIDE
     Indication: PRODUCT USED FOR UNKNOWN INDICATION
     Dosage: UNK
     Route: 065
  8. LAMICTAL [Concomitant]
     Active Substance: LAMOTRIGINE
     Indication: PRODUCT USED FOR UNKNOWN INDICATION
     Dosage: UNK
     Route: 065
  9. LISINOPRIL. [Concomitant]
     Active Substance: LISINOPRIL
     Indication: PRODUCT USED FOR UNKNOWN INDICATION
     Dosage: UNK
     Route: 065
  10. MELOXICAM. [Concomitant]
     Active Substance: MELOXICAM
     Indication: PRODUCT USED FOR UNKNOWN INDICATION
     Dosage: UNK
     Route: 065
  11. TRI-SPRINTEC [Concomitant]
     Active Substance: ETHINYL ESTRADIOL\NORGESTIMATE
     Indication: PRODUCT USED FOR UNKNOWN INDICATION
     Dosage: UNK
     Route: 065
  12. BUPROPION HCL ER [Concomitant]
     Active Substance: BUPROPION HYDROCHLORIDE
     Indication: PRODUCT USED FOR UNKNOWN INDICATION
     Dosage: UNK, QD
     Route: 048
  13. MELATONIN [Concomitant]
     Active Substance: MELATONIN
     Indication: PRODUCT USED FOR UNKNOWN INDICATION
     Dosage: UNK
     Route: 065
  14. ABILIFY [Suspect]
     Active Substance: ARIPIPRAZOLE
     Indication: BIPOLAR DISORDER
     Dosage: 5 MG, UNK
     Route: 065
  15. ABILIFY [Suspect]
     Active Substance: ARIPIPRAZOLE
     Dosage: 30 MG, UNK
     Route: 065

REACTIONS (41)
  - Mental disorder [Unknown]
  - Acute sinusitis [Unknown]
  - Haematocrit increased [Unknown]
  - Flushing [Unknown]
  - Abnormal weight gain [Unknown]
  - Dry mouth [Unknown]
  - Divorced [Unknown]
  - Disability [Unknown]
  - Dependence [Recovered/Resolved]
  - Condition aggravated [Recovered/Resolved]
  - Suicide attempt [Recovered/Resolved]
  - Impulse-control disorder [Recovered/Resolved]
  - Irritability [Unknown]
  - Gambling disorder [Recovered/Resolved]
  - Anxiety [Unknown]
  - Obsessive-compulsive disorder [Recovered/Resolved]
  - Pulmonary congestion [Unknown]
  - Ear infection [Unknown]
  - Bronchitis [Unknown]
  - Amenorrhoea [Unknown]
  - Pain [Unknown]
  - Vomiting [Unknown]
  - Suicidal ideation [Recovered/Resolved]
  - Cystitis [Unknown]
  - Emotional distress [Unknown]
  - Dizziness [Unknown]
  - Impulsive behaviour [Recovered/Resolved]
  - Injury [Unknown]
  - Red cell distribution width increased [Unknown]
  - Red blood cell count increased [Unknown]
  - Pharyngitis [Unknown]
  - Asthenia [Unknown]
  - Bankruptcy [Unknown]
  - Psychosexual disorder [Recovered/Resolved]
  - Condition aggravated [Unknown]
  - Neck pain [Unknown]
  - Depression [Unknown]
  - Prescribed underdose [Unknown]
  - Insurance issue [Unknown]
  - Homeless [Unknown]
  - Loss of employment [Unknown]

NARRATIVE: CASE EVENT DATE: 201507
